FAERS Safety Report 21568923 (Version 1)
Quarter: 2022Q4

REPORT INFORMATION
  Report Type: Spontaneous
  Country: US (occurrence: US)
  Receive Date: 20221108
  Receipt Date: 20221108
  Transmission Date: 20230113
  Serious: Yes (Death, Hospitalization, Other)
  Sender: FDA-Public Use
  Company Number: US-AMGEN-USASP2022189827

PATIENT

DRUGS (1)
  1. FILGRASTIM [Suspect]
     Active Substance: FILGRASTIM
     Indication: Product used for unknown indication
     Dosage: UNK
     Route: 065

REACTIONS (14)
  - Death [Fatal]
  - Systemic candida [Unknown]
  - Aspergillus infection [Unknown]
  - Mucormycosis [Unknown]
  - Brain abscess [Unknown]
  - Scedosporium infection [Unknown]
  - Pseudallescheria infection [Unknown]
  - Fusarium infection [Unknown]
  - Central nervous system infection [Unknown]
  - Lower respiratory tract infection [Unknown]
  - Fungal infection [Unknown]
  - Lung consolidation [Unknown]
  - Candida infection [Unknown]
  - Febrile neutropenia [Unknown]
